FAERS Safety Report 9138803 (Version 1)
Quarter: 2013Q1

REPORT INFORMATION
  Report Type: Spontaneous
  Country: US (occurrence: US)
  Receive Date: 20130305
  Receipt Date: 20130305
  Transmission Date: 20140127
  Serious: Yes (Other)
  Sender: FDA-Public Use
  Company Number: US-ENDO PHARMACEUTICALS INC.-PERC20100133

PATIENT
  Sex: Female

DRUGS (6)
  1. PERCOCET [Suspect]
     Indication: DRUG ABUSE
     Dosage: UNKNOWN
     Route: 048
  2. OXYCONTIN [Suspect]
     Indication: DRUG ABUSE
     Dosage: UNKNOWN
     Route: 065
  3. OXYCODONE [Suspect]
     Indication: DRUG ABUSE
     Dosage: 5 MG
     Route: 065
  4. OXYCODONE [Suspect]
     Dosage: 15 MG
     Route: 065
  5. VALIUM [Suspect]
     Indication: DRUG ABUSE
     Dosage: UNKNOWN
     Route: 065
  6. TRAMADOL [Suspect]
     Indication: DRUG ABUSE
     Dosage: UNKNOWN
     Route: 065

REACTIONS (1)
  - Drug dependence [Unknown]
